FAERS Safety Report 7632175-5 (Version None)
Quarter: 2011Q3

REPORT INFORMATION
  Report Type: 
  Country: None (occurrence: None)
  Receive Date: 20110725
  Receipt Date: 20110525
  Transmission Date: 20111222
  Serious: Yes (Hospitalization, Other)
  Sender: FDA-Public Use
  Company Number: US-BRISTOL-MYERS SQUIBB COMPANY-15777832

PATIENT
  Age: 79 Year
  Sex: Female

DRUGS (2)
  1. COUMADIN [Suspect]
     Route: 048
  2. BLOOD PRESSURE MEDICATION [Concomitant]
     Indication: HYPERTENSION

REACTIONS (1)
  - URINARY BLADDER HAEMORRHAGE [None]
